FAERS Safety Report 7647509-5 (Version None)
Quarter: 2011Q3

REPORT INFORMATION
  Report Type: 
  Country: None (occurrence: None)
  Receive Date: 20110801
  Receipt Date: 20110728
  Transmission Date: 20111222
  Serious: Yes (Other)
  Sender: FDA-Public Use
  Company Number: CA-GLAXOSMITHKLINE-A0930094A

PATIENT
  Sex: Female
  Weight: 55.5 kg

DRUGS (8)
  1. ASPIRIN [Concomitant]
     Dosage: 81MG PER DAY
     Route: 065
  2. TIAZAC [Concomitant]
     Indication: CARDIAC DISORDER
     Dosage: 180MG PER DAY
     Route: 065
  3. SENOKOT [Concomitant]
     Indication: DIARRHOEA
  4. DOCUSATE [Concomitant]
     Indication: DIARRHOEA
  5. ATACAND [Concomitant]
     Dosage: 4MG UNKNOWN
     Route: 065
  6. VENTOLIN HFA [Concomitant]
     Route: 065
  7. ADVAIR DISKUS 100/50 [Suspect]
     Indication: ASTHMA
     Dosage: 125MCG UNKNOWN
     Route: 065
     Dates: start: 20100101
  8. SIMVASTATIN [Concomitant]
     Dosage: 10MG PER DAY
     Route: 065

REACTIONS (6)
  - VISUAL IMPAIRMENT [None]
  - VISION BLURRED [None]
  - URINE FLOW DECREASED [None]
  - MACULAR DEGENERATION [None]
  - WEIGHT DECREASED [None]
  - DECREASED APPETITE [None]
